FAERS Safety Report 13738378 (Version 1)
Quarter: 2017Q3

REPORT INFORMATION
  Report Type: Spontaneous
  Country: BR (occurrence: BR)
  Receive Date: 20170710
  Receipt Date: 20170710
  Transmission Date: 20171127
  Serious: Yes (Death)
  Sender: FDA-Public Use
  Company Number: PHHY2011BR30055

PATIENT
  Age: 96 Year
  Sex: Female

DRUGS (1)
  1. HYDERGINE [Suspect]
     Active Substance: ERGOLOID MESYLATES

REACTIONS (1)
  - Death [Fatal]
